FAERS Safety Report 21917700 (Version 2)
Quarter: 2023Q1

REPORT INFORMATION
  Report Type: Spontaneous
  Country: IT (occurrence: IT)
  Receive Date: 20230127
  Receipt Date: 20230213
  Transmission Date: 20230417
  Serious: Yes (Hospitalization, Other)
  Sender: FDA-Public Use
  Company Number: IT-002147023-NVSC2023IT013803

PATIENT
  Sex: Female

DRUGS (2)
  1. OMALIZUMAB [Suspect]
     Active Substance: OMALIZUMAB
     Indication: Chronic spontaneous urticaria
     Route: 065
     Dates: start: 202103
  2. OMALIZUMAB [Suspect]
     Active Substance: OMALIZUMAB
     Dosage: UNK (21 JUN, SECOND THERAPEUTIC PLAN, 21 SEP STOP RELATED TO THE THERAPEUTIC PLAN)
     Route: 065

REACTIONS (4)
  - Cardiac disorder [Unknown]
  - Kounis syndrome [Recovered/Resolved]
  - Chronic spontaneous urticaria [Unknown]
  - Therapeutic response unexpected [Unknown]
